FAERS Safety Report 23399324 (Version 1)
Quarter: 2024Q1

REPORT INFORMATION
  Report Type: Spontaneous
  Country: US (occurrence: US)
  Receive Date: 20240113
  Receipt Date: 20240113
  Transmission Date: 20240410
  Serious: No
  Sender: FDA-Public Use
  Company Number: US-SANOFI-01902904

PATIENT
  Age: 82 Year
  Sex: Male

DRUGS (2)
  1. LANTUS SOLOSTAR [Suspect]
     Active Substance: INSULIN GLARGINE
     Indication: Type 2 diabetes mellitus
     Dosage: 40 IU, QD
     Dates: start: 2023
  2. LANTUS SOLOSTAR [Suspect]
     Active Substance: INSULIN GLARGINE
     Dosage: 50 IU, QD (IN THE MORNING)

REACTIONS (1)
  - Product storage error [Unknown]
